FAERS Safety Report 7965474-8 (Version None)
Quarter: 2011Q4

REPORT INFORMATION
  Report Type: 
  Country: None (occurrence: None)
  Receive Date: 20111206
  Receipt Date: 20111123
  Transmission Date: 20120403
  Serious: Yes (Life-Threatening, Hospitalization, Other)
  Sender: FDA-Public Use
  Company Number: 1117717

PATIENT
  Age: 53 Year
  Sex: Female

DRUGS (1)
  1. CARBOPLATIN [Suspect]
     Indication: OVARIAN NEOPLASM
     Dosage: 600 MG MILLIGRAM(S),,INTRAVENOUS DRIP
     Route: 041
     Dates: start: 20111110, end: 20111110

REACTIONS (5)
  - HYPERHIDROSIS [None]
  - DRUG HYPERSENSITIVITY [None]
  - LOSS OF CONSCIOUSNESS [None]
  - ASTHENIA [None]
  - BLOOD PRESSURE IMMEASURABLE [None]
